FAERS Safety Report 13590777 (Version 1)
Quarter: 2017Q2

REPORT INFORMATION
  Report Type: Spontaneous
  Country: US (occurrence: US)
  Receive Date: 20170530
  Receipt Date: 20170530
  Transmission Date: 20170830
  Serious: No
  Sender: FDA-Public Use
  Company Number: US-009507513-1705USA009824

PATIENT
  Age: 65 Year
  Sex: Male

DRUGS (2)
  1. HEXADROL [Suspect]
     Active Substance: DEXAMETHASONE
     Indication: GLOMERULONEPHRITIS PROLIFERATIVE
     Dosage: UNK
     Route: 048
  2. BORTEZOMIB [Concomitant]
     Active Substance: BORTEZOMIB
     Indication: GLOMERULONEPHRITIS PROLIFERATIVE
     Dosage: (1.3MG/M2) S.C WEEKLY FOR SEVEN DOSES
     Route: 058

REACTIONS (1)
  - Product use in unapproved indication [Unknown]
